FAERS Safety Report 19045906 (Version 1)
Quarter: 2021Q1

REPORT INFORMATION
  Report Type: Spontaneous
  Country: US (occurrence: US)
  Receive Date: 20210322
  Receipt Date: 20210322
  Transmission Date: 20210420
  Serious: No
  Sender: FDA-Public Use
  Company Number: US-INCYTE CORPORATION-2021IN001389

PATIENT

DRUGS (2)
  1. NAVITOCLAX [Concomitant]
     Active Substance: NAVITOCLAX
     Indication: PRODUCT USED FOR UNKNOWN INDICATION
     Dosage: UNK
     Route: 065
  2. JAKAFI [Suspect]
     Active Substance: RUXOLITINIB
     Indication: MYELOPROLIFERATIVE NEOPLASM
     Dosage: 15 MILLIGRAM, BID
     Route: 048
     Dates: start: 202102

REACTIONS (6)
  - Blood creatinine increased [Unknown]
  - Diarrhoea [Recovering/Resolving]
  - Headache [Recovered/Resolved]
  - Platelet count decreased [Unknown]
  - Off label use [Unknown]
  - Abdominal pain upper [Recovered/Resolved]

NARRATIVE: CASE EVENT DATE: 202102
